FAERS Safety Report 13123091 (Version 1)
Quarter: 2017Q1

REPORT INFORMATION
  Report Type: Spontaneous
  Country: AU (occurrence: AU)
  Receive Date: 20170117
  Receipt Date: 20170117
  Transmission Date: 20170428
  Serious: Yes (Hospitalization)
  Sender: FDA-Public Use
  Company Number: AU-ALLERGAN-1701681US

PATIENT
  Age: 82 Year
  Sex: Male

DRUGS (1)
  1. COMBIGAN [Suspect]
     Active Substance: BRIMONIDINE TARTRATE\TIMOLOL MALEATE
     Indication: GLAUCOMA
     Dosage: UNK
     Route: 047
     Dates: start: 2009, end: 2010

REACTIONS (3)
  - Hyperhidrosis [Recovered/Resolved]
  - Cardiac disorder [Recovered/Resolved]
  - Dizziness [Recovered/Resolved]

NARRATIVE: CASE EVENT DATE: 2010
